FAERS Safety Report 24647023 (Version 1)
Quarter: 2024Q4

REPORT INFORMATION
  Report Type: Spontaneous
  Country: EG (occurrence: EG)
  Receive Date: 20241121
  Receipt Date: 20241121
  Transmission Date: 20250115
  Serious: Yes (Other)
  Sender: HIKMA
  Company Number: EG-HIKMA PHARMACEUTICALS USA INC.-EG-H14001-24-10675

PATIENT

DRUGS (3)
  1. CARBOPLATIN [Suspect]
     Active Substance: CARBOPLATIN
     Indication: Ovarian cancer
     Dosage: 668 MG/DAY 1/EVERY 4 WEEKS
     Route: 041
     Dates: start: 20240709
  2. PACLITAXEL [Suspect]
     Active Substance: PACLITAXEL
     Dosage: 136 MG/WEEK, SECOND CYCLE DAY 15
     Route: 041
     Dates: start: 20240724
  3. PACLITAXEL [Suspect]
     Active Substance: PACLITAXEL
     Indication: Ovarian cancer
     Dosage: 136 MG/WEEK, SECOND CYCLE, DAY 1
     Route: 041
     Dates: start: 20240709

REACTIONS (4)
  - Neutropenia [Unknown]
  - Thrombocytopenia [Unknown]
  - Neuropathy peripheral [Not Recovered/Not Resolved]
  - Headache [Not Recovered/Not Resolved]

NARRATIVE: CASE EVENT DATE: 20240709
